FAERS Safety Report 10527324 (Version 2)
Quarter: 2014Q4

REPORT INFORMATION
  Report Type: Spontaneous
  Country: US (occurrence: US)
  Receive Date: 20141020
  Receipt Date: 20141028
  Transmission Date: 20150528
  Serious: Yes (Other)
  Sender: FDA-Public Use
  Company Number: US-SA-2014SA141687

PATIENT
  Age: 71 Year
  Sex: Female

DRUGS (7)
  1. VALSARTAN. [Concomitant]
     Active Substance: VALSARTAN
     Dosage: DOSE: 1 DAILY
  2. MAGNESIUM [Concomitant]
     Active Substance: MAGNESIUM
     Dosage: DOSE: 1 DAILY
  3. SOLOSTAR [Suspect]
     Active Substance: DEVICE
     Indication: TYPE 2 DIABETES MELLITUS
     Dates: start: 201403
  4. LANTUS SOLOSTAR [Suspect]
     Active Substance: INSULIN GLARGINE
     Indication: TYPE 2 DIABETES MELLITUS
     Dosage: DOSE:35 UNIT(S)
     Route: 065
     Dates: start: 201403
  5. ASPIRIN. [Concomitant]
     Active Substance: ASPIRIN
     Dosage: DOSE: 1 DAILY
  6. ALL OTHER THERAPEUTIC PRODUCTS [Concomitant]
     Active Substance: UNSPECIFIED INGREDIENT
  7. LANTUS [Suspect]
     Active Substance: INSULIN GLARGINE
     Indication: TYPE 2 DIABETES MELLITUS
     Route: 065

REACTIONS (2)
  - Blood glucose increased [Unknown]
  - Loss of consciousness [Unknown]

NARRATIVE: CASE EVENT DATE: 20141012
